FAERS Safety Report 5571868-0 (Version None)
Quarter: 2007Q4

REPORT INFORMATION
  Report Type: 
  Country: None (occurrence: None)
  Receive Date: 20071219
  Receipt Date: 20071205
  Transmission Date: 20080405
  Serious: Yes (Other)
  Sender: FDA-Public Use
  Company Number: SPV1-2007-05118

PATIENT
  Sex: Female
  Weight: 54.4 kg

DRUGS (5)
  1. MIDODRINE HYDROCHLORIDE [Suspect]
     Indication: POSTURAL ORTHOSTATIC TACHYCARDIA SYNDROME
     Dosage: 10 MG, 2X/DAY;BID, ORAL
     Route: 048
     Dates: start: 20030701, end: 20040401
  2. PROCAINAMIDE [Suspect]
     Indication: TACHYCARDIA
     Dosage: ORAL
     Route: 048
     Dates: start: 20040101, end: 20050601
  3. PYRIDOSTIGMINE BROMIDE [Suspect]
     Indication: MUSCULAR WEAKNESS
     Dosage: ORAL
     Route: 048
     Dates: start: 20040201, end: 20050601
  4. PROPRANOLOL [Concomitant]
  5. FLORINEF [Concomitant]

REACTIONS (11)
  - ALTERED STATE OF CONSCIOUSNESS [None]
  - ASTHENIA [None]
  - COMA [None]
  - CONVULSION [None]
  - CYANOSIS [None]
  - DIPLEGIA [None]
  - HYPOXIA [None]
  - MALAISE [None]
  - PHAEOCHROMOCYTOMA [None]
  - TACHYCARDIA [None]
  - TRANSIENT ISCHAEMIC ATTACK [None]
